FAERS Safety Report 8844664 (Version 2)
Quarter: 2013Q2

REPORT INFORMATION
  Report Type: Spontaneous
  Country: GB (occurrence: GB)
  Receive Date: 20121017
  Receipt Date: 20130408
  Transmission Date: 20140414
  Serious: Yes (Death, Hospitalization, Other)
  Sender: FDA-Public Use
  Company Number: PHFR2012GB005435

PATIENT
  Age: 32 Year
  Sex: Male
  Weight: 82.5 kg

DRUGS (1)
  1. CLOZARIL [Suspect]
     Indication: SCHIZOPHRENIA
     Dosage: UNK UKN, UNK
     Route: 048
     Dates: start: 20061102

REACTIONS (6)
  - Death [Fatal]
  - Fall [Unknown]
  - Schizophrenia [Unknown]
  - Aggression [Unknown]
  - White blood cell count increased [Unknown]
  - Neutrophil count increased [Unknown]
